FAERS Safety Report 10683053 (Version 3)
Quarter: 2015Q1

REPORT INFORMATION
  Report Type: Spontaneous
  Country: JP (occurrence: JP)
  Receive Date: 20141230
  Receipt Date: 20150202
  Transmission Date: 20150720
  Serious: Yes (Hospitalization, Other)
  Sender: FDA-Public Use
  Company Number: JP-B.I. PHARMACEUTICALS,INC./RIDGEFIELD-2014-BI-52428NB

PATIENT
  Age: 59 Year
  Sex: Male
  Weight: 79 kg

DRUGS (1)
  1. GILOTRIF [Suspect]
     Active Substance: AFATINIB
     Indication: PRODUCT USED FOR UNKNOWN INDICATION
     Dosage: 40 MG
     Route: 048
     Dates: start: 20141017, end: 20141028

REACTIONS (2)
  - Interstitial lung disease [Not Recovered/Not Resolved]
  - Lymphangiosis carcinomatosa [Not Recovered/Not Resolved]

NARRATIVE: CASE EVENT DATE: 20141024
